FAERS Safety Report 22941193 (Version 23)
Quarter: 2025Q2

REPORT INFORMATION
  Report Type: Report from Study
  Country: CA (occurrence: CA)
  Receive Date: 20230913
  Receipt Date: 20250429
  Transmission Date: 20250716
  Serious: Yes (Hospitalization, Other)
  Sender: HLS THERAPEUTICS
  Company Number: CA-HLS-202302152

PATIENT
  Age: 67 Year
  Sex: Male

DRUGS (18)
  1. CLOZARIL [Suspect]
     Active Substance: CLOZAPINE
     Indication: Product used for unknown indication
     Route: 048
     Dates: start: 20140102
  2. benzocaine-menthol [Concomitant]
     Indication: Product used for unknown indication
     Route: 065
  3. AMLODIPINE [Concomitant]
     Active Substance: AMLODIPINE BESYLATE
     Indication: Product used for unknown indication
     Route: 065
  4. ASPIRIN [Concomitant]
     Active Substance: ASPIRIN
     Indication: Product used for unknown indication
     Route: 065
  5. ACETAMINOPHEN [Concomitant]
     Active Substance: ACETAMINOPHEN
     Indication: Pain
     Route: 065
  6. MOMETASONE [Concomitant]
     Active Substance: MOMETASONE
     Indication: Product used for unknown indication
     Route: 065
  7. DAPAGLIFLOZIN [Concomitant]
     Active Substance: DAPAGLIFLOZIN
     Indication: Product used for unknown indication
     Route: 065
  8. ZOPICLONE [Concomitant]
     Active Substance: ZOPICLONE
     Indication: Insomnia
     Route: 065
  9. VITAMIN D3 [Concomitant]
     Active Substance: CHOLECALCIFEROL
     Indication: Product used for unknown indication
     Route: 065
  10. TERAZOSIN [Concomitant]
     Active Substance: TERAZOSIN HYDROCHLORIDE
     Indication: Product used for unknown indication
     Route: 065
  11. SODIUM BICARBONATE [Concomitant]
     Active Substance: SODIUM BICARBONATE
     Indication: Product used for unknown indication
     Route: 065
  12. SENNOSIDES [Concomitant]
     Active Substance: SENNOSIDES
     Indication: Product used for unknown indication
     Route: 065
  13. ROSUVASTATIN [Concomitant]
     Active Substance: ROSUVASTATIN
     Indication: Product used for unknown indication
     Route: 065
  14. QUETIAPINE [Concomitant]
     Active Substance: QUETIAPINE
     Indication: Product used for unknown indication
     Route: 065
  15. PROCHLORPERAZINE [Concomitant]
     Active Substance: PROCHLORPERAZINE
     Indication: Nausea
     Route: 065
  16. PROCHLORPERAZINE [Concomitant]
     Active Substance: PROCHLORPERAZINE
     Indication: Vomiting
     Route: 065
  17. POLYETHYLENE GLYCOL [Concomitant]
     Active Substance: POLYETHYLENE GLYCOL
     Indication: Product used for unknown indication
     Route: 065
  18. PALIPERIDONE [Concomitant]
     Active Substance: PALIPERIDONE
     Indication: Product used for unknown indication
     Route: 065

REACTIONS (30)
  - Electrocardiogram abnormal [Unknown]
  - Cerebral infarction [Unknown]
  - Abdominal pain [Unknown]
  - Electrocardiogram abnormal [Recovered/Resolved]
  - Altered state of consciousness [Unknown]
  - Atelectasis [Recovering/Resolving]
  - Chronic kidney disease [Unknown]
  - Hepatic cirrhosis [Unknown]
  - Flatulence [Unknown]
  - Colorectal cancer [Unknown]
  - Arteriosclerosis coronary artery [Unknown]
  - COVID-19 [Unknown]
  - Blood creatinine increased [Unknown]
  - Diabetes mellitus [Unknown]
  - Abdominal distension [Unknown]
  - Dyspnoea [Unknown]
  - Fall [Unknown]
  - Glomerular filtration rate decreased [Unknown]
  - Hypertension [Unknown]
  - Iron deficiency anaemia [Unknown]
  - Ischaemic stroke [Unknown]
  - Inguinal hernia [Unknown]
  - Neutropenia [Unknown]
  - Porcelain gallbladder [Unknown]
  - Prostatomegaly [Unknown]
  - Scar [Unknown]
  - Lung opacity [Unknown]
  - Small intestinal obstruction [Unknown]
  - Umbilical hernia [Unknown]
  - Supraventricular tachycardia [Unknown]

NARRATIVE: CASE EVENT DATE: 20230101
